FAERS Safety Report 25283478 (Version 1)
Quarter: 2025Q2

REPORT INFORMATION
  Report Type: Spontaneous
  Country: TR (occurrence: TR)
  Receive Date: 20250508
  Receipt Date: 20250508
  Transmission Date: 20250716
  Serious: Yes (Life-Threatening, Other)
  Sender: AMERICAN REGENT
  Company Number: TR-AMERICAN REGENT INC-2025001927

PATIENT
  Age: 28 Year
  Sex: Male
  Weight: 112 kg

DRUGS (1)
  1. FERINJECT [Suspect]
     Active Substance: FERRIC CARBOXYMALTOSE
     Indication: Iron deficiency anaemia
     Route: 042
     Dates: start: 20250418, end: 20250418

REACTIONS (2)
  - Loss of consciousness [Recovering/Resolving]
  - Malaise [Recovering/Resolving]

NARRATIVE: CASE EVENT DATE: 20250418
